FAERS Safety Report 9468165 (Version 1)
Quarter: 2013Q3

REPORT INFORMATION
  Report Type: Spontaneous
  Country: US (occurrence: US)
  Receive Date: 20130821
  Receipt Date: 20130821
  Transmission Date: 20140515
  Serious: No
  Sender: FDA-Public Use
  Company Number: US-BRACCO-008730

PATIENT
  Sex: 0

DRUGS (3)
  1. KINEVAC [Suspect]
     Indication: DIAGNOSTIC PROCEDURE
  2. KINEVAC [Suspect]
     Indication: PRODUCT USED FOR UNKNOWN INDICATION
  3. DEXTROSE IN WATER [Concomitant]

REACTIONS (1)
  - Wrong technique in drug usage process [Unknown]
